FAERS Safety Report 7220130-9 (Version None)
Quarter: 2011Q1

REPORT INFORMATION
  Report Type: 
  Country: None (occurrence: None)
  Receive Date: 20110111
  Receipt Date: 20110105
  Transmission Date: 20110831
  Serious: Yes (Other)
  Sender: FDA-Public Use
  Company Number: CHPA2011US00546

PATIENT
  Age: 80 Year
  Sex: Male

DRUGS (1)
  1. LAMISIL AT GEL [Suspect]
     Indication: FUNGAL INFECTION
     Dosage: UNK , UNK
     Route: 061

REACTIONS (2)
  - RENAL TRANSPLANT [None]
  - RENAL DISORDER [None]
